FAERS Safety Report 19222268 (Version 1)
Quarter: 2021Q2

REPORT INFORMATION
  Report Type: Spontaneous
  Country: BR (occurrence: BR)
  Receive Date: 20210506
  Receipt Date: 20210506
  Transmission Date: 20210717
  Serious: Yes (Hospitalization, Other)
  Sender: FDA-Public Use
  Company Number: BR-AMGEN-BRASP2021017025

PATIENT
  Sex: Male
  Weight: 20 kg

DRUGS (1)
  1. BLINCYTO [Suspect]
     Active Substance: BLINATUMOMAB
     Indication: ACUTE LYMPHOCYTIC LEUKAEMIA RECURRENT
     Dosage: 5 MICROGRAM/SQ. METER, QD
     Route: 065
     Dates: end: 20210427

REACTIONS (4)
  - Neutropenia [Unknown]
  - Seizure [Unknown]
  - Pyrexia [Unknown]
  - Hepatotoxicity [Recovering/Resolving]
